FAERS Safety Report 5294831-6 (Version None)
Quarter: 2007Q2

REPORT INFORMATION
  Report Type: 
  Country: None (occurrence: None)
  Receive Date: 20070412
  Receipt Date: 20070328
  Transmission Date: 20071010
  Serious: Yes (Other)
  Sender: FDA-Public Use
  Company Number: MX-AVENTIS-200616322GDDC

PATIENT
  Age: 54 Month
  Sex: Female
  Weight: 15 kg

DRUGS (3)
  1. TELITHROMYCIN [Suspect]
     Dosage: DOSE: UNK
     Route: 048
     Dates: start: 20051027, end: 20051106
  2. METAMIZOL [Concomitant]
     Dates: start: 20051026, end: 20051030
  3. CEFUROXIME [Suspect]

REACTIONS (1)
  - BLOOD BILIRUBIN INCREASED [None]
